FAERS Safety Report 15743670 (Version 1)
Quarter: 2018Q4

REPORT INFORMATION
  Report Type: Spontaneous
  Country: US (occurrence: US)
  Receive Date: 20181220
  Receipt Date: 20181220
  Transmission Date: 20190205
  Serious: No
  Sender: FDA-Public Use
  Company Number: US-PFIZER INC-2018516037

PATIENT
  Age: 4 Year

DRUGS (1)
  1. ZARONTIN [Suspect]
     Active Substance: ETHOSUXIMIDE
     Dosage: UNK

REACTIONS (3)
  - Product taste abnormal [Unknown]
  - Poor quality product administered [Unknown]
  - Drug ineffective [Unknown]
